FAERS Safety Report 6699585-4 (Version None)
Quarter: 2010Q2

REPORT INFORMATION
  Report Type: 
  Country: None (occurrence: None)
  Receive Date: 20100428
  Receipt Date: 20100419
  Transmission Date: 20101027
  Serious: Yes (Hospitalization)
  Sender: FDA-Public Use
  Company Number: US-BIOGENIDEC-2010BI009545

PATIENT
  Age: 47 Year
  Sex: Female

DRUGS (2)
  1. TYSABRI [Suspect]
     Indication: MULTIPLE SCLEROSIS
     Route: 042
  2. INSULIN (NOS) [Concomitant]
     Indication: TYPE 1 DIABETES MELLITUS
     Dates: start: 19660101

REACTIONS (8)
  - AUTOIMMUNE DISORDER [None]
  - LUNG INFECTION [None]
  - MULTIPLE SCLEROSIS RELAPSE [None]
  - PERITONEAL HERNIA [None]
  - PULMONARY OEDEMA [None]
  - SEDATION [None]
  - SEPSIS [None]
  - VOLVULUS [None]
